FAERS Safety Report 7180910 (Version 3)
Quarter: 2014Q1

REPORT INFORMATION
  Report Type: Spontaneous
  Country: US (occurrence: US)
  Receive Date: 20091119
  Receipt Date: 20140328
  Transmission Date: 20141002
  Serious: Yes (Death, Other)
  Sender: FDA-Public Use
  Company Number: US-BIOGENIDEC-2009BI037060

PATIENT
  Age: 73 Year
  Sex: Female

DRUGS (2)
  1. AVONEX [Suspect]
     Indication: MULTIPLE SCLEROSIS
     Route: 030
     Dates: start: 20010917
  2. REBIF [Concomitant]

REACTIONS (3)
  - Drug ineffective [Unknown]
  - Multiple sclerosis [Fatal]
  - Coronary artery occlusion [Recovered/Resolved]
